FAERS Safety Report 5498637-4 (Version None)
Quarter: 2007Q4

REPORT INFORMATION
  Report Type: 
  Country: None (occurrence: None)
  Receive Date: 20071026
  Receipt Date: 20071022
  Transmission Date: 20080405
  Serious: Yes (Other)
  Sender: FDA-Public Use
  Company Number: GB-WYE-G00506307

PATIENT

DRUGS (1)
  1. VENLAFAXIINE HCL [Suspect]
     Dosage: UNKNOWN

REACTIONS (3)
  - IDIOPATHIC CAPILLARITIS [None]
  - RASH [None]
  - SCHAMBERG'S DISEASE [None]
